FAERS Safety Report 21058600 (Version 5)
Quarter: 2023Q1

REPORT INFORMATION
  Report Type: Spontaneous
  Country: US (occurrence: US)
  Receive Date: 20220708
  Receipt Date: 20230217
  Transmission Date: 20230417
  Serious: Yes (Hospitalization, Other)
  Sender: FDA-Public Use
  Company Number: US-PFIZER INC-202200935052

PATIENT
  Age: 63 Year
  Sex: Female
  Weight: 53.07 kg

DRUGS (6)
  1. XELJANZ XR [Suspect]
     Active Substance: TOFACITINIB CITRATE
     Indication: Rheumatoid arthritis
     Dosage: 11 MG, 1X/DAY
  2. XELJANZ XR [Suspect]
     Active Substance: TOFACITINIB CITRATE
     Dosage: UNK
  3. HYDROXYCHLOROQUINE [Concomitant]
     Active Substance: HYDROXYCHLOROQUINE
     Indication: Rheumatoid arthritis
     Dosage: 200 MG, 1X/DAY
  4. AMLODIPINE [Concomitant]
     Active Substance: AMLODIPINE BESYLATE
     Indication: Hypertension
     Dosage: 5 MG
  5. ALEVE [Concomitant]
     Active Substance: NAPROXEN SODIUM
     Dosage: UNK
  6. AMOXICILLIN [Concomitant]
     Active Substance: AMOXICILLIN
     Dosage: UNK

REACTIONS (10)
  - Urinary tract infection [Recovered/Resolved]
  - Psoriasis [Recovered/Resolved]
  - Tooth abscess [Recovered/Resolved]
  - Musculoskeletal disorder [Not Recovered/Not Resolved]
  - Cardiac disorder [Recovered/Resolved]
  - Peripheral swelling [Recovered/Resolved]
  - Gait disturbance [Not Recovered/Not Resolved]
  - Asthenia [Unknown]
  - Cystitis [Unknown]
  - Limb discomfort [Unknown]

NARRATIVE: CASE EVENT DATE: 20211031
